FAERS Safety Report 18124253 (Version 2)
Quarter: 2020Q3

REPORT INFORMATION
  Report Type: Report from Study
  Country: US (occurrence: US)
  Receive Date: 20200807
  Receipt Date: 20200914
  Transmission Date: 20201103
  Serious: Yes (Hospitalization)
  Sender: FDA-Public Use
  Company Number: US-EISAI MEDICAL RESEARCH-EC-2020-078050

PATIENT
  Age: 63 Year
  Sex: Female

DRUGS (9)
  1. LEVOTHYROXINE SODIUM. [Concomitant]
     Active Substance: LEVOTHYROXINE SODIUM
  2. AMPICILLIN TRIHYDRATE. [Concomitant]
     Active Substance: AMPICILLIN TRIHYDRATE
  3. MILLIPRED [Concomitant]
     Active Substance: PREDNISOLONE
  4. LENVIMA [Suspect]
     Active Substance: LENVATINIB
     Indication: ENDOMETRIAL CANCER
     Route: 048
     Dates: start: 202005, end: 202007
  5. PEPTO?BISMOL [Concomitant]
     Active Substance: BISMUTH SUBSALICYLATE
  6. PREDNISONE. [Concomitant]
     Active Substance: PREDNISONE
  7. DEXAMETHASONE. [Concomitant]
     Active Substance: DEXAMETHASONE
  8. LENVIMA [Suspect]
     Active Substance: LENVATINIB
     Route: 048
     Dates: start: 2020
  9. AMLODIPINE BESYLATE. [Concomitant]
     Active Substance: AMLODIPINE BESYLATE

REACTIONS (18)
  - Thyroid disorder [Recovering/Resolving]
  - Blood thyroid stimulating hormone increased [Unknown]
  - Weight decreased [Recovering/Resolving]
  - Nausea [Unknown]
  - Sensitive skin [Recovering/Resolving]
  - Cardiac disorder [Recovering/Resolving]
  - Vomiting [Recovering/Resolving]
  - Headache [Unknown]
  - Diarrhoea [Recovering/Resolving]
  - Liver disorder [Recovering/Resolving]
  - Pain [Unknown]
  - Dysphonia [Unknown]
  - Haemorrhage [Recovering/Resolving]
  - Blister [Recovering/Resolving]
  - Feeding disorder [Recovering/Resolving]
  - Blood pressure increased [Recovering/Resolving]
  - Decreased appetite [Recovering/Resolving]
  - Gastrointestinal disorder [Recovering/Resolving]

NARRATIVE: CASE EVENT DATE: 2020
